FAERS Safety Report 5092407-7 (Version None)
Quarter: 2006Q3

REPORT INFORMATION
  Report Type: 
  Country: None (occurrence: None)
  Receive Date: 20060825
  Receipt Date: 20060816
  Transmission Date: 20061208
  Serious: Yes (Other)
  Sender: FDA-Public Use
  Company Number: 2006099868

PATIENT
  Age: 53 Year
  Sex: Male
  Weight: 77.1115 kg

DRUGS (2)
  1. LUBRIDERM DAILY MOISTURE WITH SPF 15 (OXYBENZONE, ETHYLHEXYL P-METHOXY [Suspect]
     Dosage: OPHTHALMIC
     Route: 047
     Dates: start: 20060813, end: 20060813
  2. BENZYLPENICILLIN SODIUM [Concomitant]

REACTIONS (7)
  - BALANCE DISORDER [None]
  - DIZZINESS [None]
  - EYE IRRITATION [None]
  - GAIT DISTURBANCE [None]
  - INCORRECT ROUTE OF DRUG ADMINISTRATION [None]
  - VISION BLURRED [None]
  - VISUAL DISTURBANCE [None]
